FAERS Safety Report 9855403 (Version 2)
Quarter: 2014Q1

REPORT INFORMATION
  Report Type: Report from Study
  Country: JP (occurrence: JP)
  Receive Date: 20140130
  Receipt Date: 20140214
  Transmission Date: 20141002
  Serious: Yes (Hospitalization)
  Sender: FDA-Public Use
  Company Number: JP-B.I. PHARMACEUTICALS,INC./RIDGEFIELD-2014-BI-04183NB

PATIENT
  Age: 42 Year
  Sex: Male
  Weight: 73 kg

DRUGS (3)
  1. PRAZAXA [Suspect]
     Indication: CEREBROVASCULAR ACCIDENT PROPHYLAXIS
     Dosage: 300 MG
     Route: 048
     Dates: start: 20130827, end: 20130830
  2. ALDACTONE A/ SPIRONOLACTONE [Concomitant]
     Dosage: 25 MG
     Route: 048
     Dates: start: 20130827, end: 20130830
  3. MAINTATE/ BISOPROLOL FUMARATE [Concomitant]
     Dosage: 1.25 MG
     Route: 048
     Dates: start: 20130827, end: 20130830

REACTIONS (1)
  - Cardiac failure [Unknown]
